FAERS Safety Report 4699148-6 (Version None)
Quarter: 2005Q2

REPORT INFORMATION
  Report Type: 
  Country: None (occurrence: None)
  Receive Date: 20050623
  Receipt Date: 20050623
  Transmission Date: 20051028
  Serious: No
  Sender: FDA-Public Use
  Company Number: None

PATIENT
  Age: 55 Year
  Sex: Male
  Weight: 81.6475 kg

DRUGS (1)
  1. VIAGRA [Suspect]
     Dosage: VIAGRA    ONE

REACTIONS (2)
  - CONDITION AGGRAVATED [None]
  - PRESUMED OCULAR HISTOPLASMOSIS SYNDROME [None]
